FAERS Safety Report 22384300 (Version 2)
Quarter: 2023Q2

REPORT INFORMATION
  Report Type: Spontaneous
  Country: US (occurrence: None)
  Receive Date: 20230530
  Receipt Date: 20230628
  Transmission Date: 20230722
  Serious: No
  Sender: FDA-Public Use
  Company Number: 2023A120551

PATIENT
  Sex: Female

DRUGS (1)
  1. BREZTRI [Suspect]
     Active Substance: BUDESONIDE\FORMOTEROL\GLYCOPYRROLATE
     Dosage: 2 PUFFS TWICE A DAY
     Route: 055

REACTIONS (4)
  - Confusional state [Unknown]
  - Visual impairment [Unknown]
  - Device malfunction [Unknown]
  - Product label confusion [Unknown]
